FAERS Safety Report 17235674 (Version 5)
Quarter: 2020Q1

REPORT INFORMATION
  Report Type: Report from Study
  Country: None (occurrence: US)
  Receive Date: 20200106
  Receipt Date: 20200217
  Transmission Date: 20200409
  Serious: Yes (Hospitalization, Other)
  Sender: FDA-Public Use
  Company Number: US-ABBVIE-20P-163-3217004-00

PATIENT
  Age: 89 Year
  Sex: Male

DRUGS (2)
  1. IMBRUVICA [Suspect]
     Active Substance: IBRUTINIB
     Indication: LYMPHOCYTIC LEUKAEMIA
     Route: 048
     Dates: start: 20190925
  2. IMBRUVICA [Suspect]
     Active Substance: IBRUTINIB
     Indication: CHRONIC LYMPHOCYTIC LEUKAEMIA
     Route: 048
     Dates: start: 20190926

REACTIONS (10)
  - Skin laceration [Not Recovered/Not Resolved]
  - Pain [Unknown]
  - Asthenia [Unknown]
  - Wound [Unknown]
  - Blood pressure decreased [Unknown]
  - Hypersomnia [Unknown]
  - Fall [Not Recovered/Not Resolved]
  - Skin laceration [Unknown]
  - Nasopharyngitis [Unknown]
  - Transfusion [Unknown]

NARRATIVE: CASE EVENT DATE: 20191228
